FAERS Safety Report 10761230 (Version 1)
Quarter: 2015Q1

REPORT INFORMATION
  Report Type: Spontaneous
  Country: US (occurrence: None)
  Receive Date: 20150128
  Receipt Date: 20150128
  Transmission Date: 20150721
  Serious: Yes (Hospitalization)
  Sender: FDA-Public Use
  Company Number: 1316889

PATIENT
  Age: 61 Year
  Sex: Male

DRUGS (2)
  1. RITUXAN [Suspect]
     Active Substance: RITUXIMAB
     Indication: CHRONIC LYMPHOCYTIC LEUKAEMIA
     Dosage: (ON DAY 1 PER CYCLE), INTRAVENOUS (NOT OTHERWISE SPECIFIED)
     Route: 042
  2. BENDAMUSTINE (BENDAMUSTINE) (BENDAMUSTINE) [Concomitant]
     Active Substance: BENDAMUSTINE
     Dosage: (ON DAY 1 AND 2 PER CYCLE, EVERY 28 DAYS), INTRAVENOUS (NOT OTHERWISE SPECIFIED)
     Route: 042

REACTIONS (1)
  - Febrile neutropenia [None]

NARRATIVE: CASE EVENT DATE: 20130526
